FAERS Safety Report 18750408 (Version 1)
Quarter: 2021Q1

REPORT INFORMATION
  Report Type: Other
  Country: GB (occurrence: GB)
  Receive Date: 20210118
  Receipt Date: 20210118
  Transmission Date: 20210419
  Serious: Yes (Other)
  Sender: FDA-Public Use
  Company Number: GB-CELLTRION INC.-2021GB000335

PATIENT

DRUGS (3)
  1. RITUXIMAB (UNKNOWN) [Suspect]
     Active Substance: RITUXIMAB
     Indication: MANTLE CELL LYMPHOMA STAGE IV
     Dosage: UNK, LAST ADMINISTRATION DATE: OCT 2019
  2. BENDAMUSTINE [Suspect]
     Active Substance: BENDAMUSTINE
     Indication: MANTLE CELL LYMPHOMA STAGE IV
     Dosage: UNK, LAST ADMINISTRATION DATE: OCT 2019
  3. CYTARABINE. [Suspect]
     Active Substance: CYTARABINE
     Indication: MANTLE CELL LYMPHOMA STAGE IV
     Dosage: UNK, LAST ADMINISTRATION DATE: OCT 2019

REACTIONS (3)
  - Diarrhoea [Unknown]
  - Off label use [Unknown]
  - Myelosuppression [Unknown]
